FAERS Safety Report 19026494 (Version 1)
Quarter: 2021Q1

REPORT INFORMATION
  Report Type: Spontaneous
  Country: HR (occurrence: HR)
  Receive Date: 20210318
  Receipt Date: 20210318
  Transmission Date: 20210420
  Serious: Yes (Hospitalization)
  Sender: FDA-Public Use
  Company Number: HR-TEVA-2021-HR-1891017

PATIENT
  Age: 28 Month
  Sex: Female
  Weight: 13 kg

DRUGS (2)
  1. KLAVOCIN [Suspect]
     Active Substance: AMOXICILLIN\CLAVULANIC ACID
     Indication: EAR INFECTION
     Route: 065
     Dates: start: 20170304
  2. AMOKSICILIN [Suspect]
     Active Substance: AMOXICILLIN
     Indication: EAR INFECTION
     Dosage: 250 MG; 5 ML
     Route: 048
     Dates: start: 20170301, end: 20170304

REACTIONS (8)
  - Oral mucosal eruption [Recovered/Resolved with Sequelae]
  - Rash [Recovered/Resolved with Sequelae]
  - Malaise [Recovered/Resolved with Sequelae]
  - Onychomadesis [Recovered/Resolved with Sequelae]
  - Skin warm [Recovered/Resolved with Sequelae]
  - Pyrexia [Recovered/Resolved with Sequelae]
  - Blister [Recovered/Resolved with Sequelae]
  - Skin injury [Recovered/Resolved with Sequelae]

NARRATIVE: CASE EVENT DATE: 20170301
